FAERS Safety Report 4844838-5 (Version None)
Quarter: 2005Q4

REPORT INFORMATION
  Report Type: 
  Country: None (occurrence: None)
  Receive Date: 20051201
  Receipt Date: 20051201
  Transmission Date: 20060501
  Serious: Yes (Life-Threatening)
  Sender: FDA-Public Use
  Company Number: None

PATIENT
  Age: 68 Year
  Sex: Female
  Weight: 61.2356 kg

DRUGS (1)
  1. AUGMENTIN [Suspect]

REACTIONS (4)
  - HEADACHE [None]
  - HEPATITIS [None]
  - IMPAIRED WORK ABILITY [None]
  - PRURITUS [None]
